FAERS Safety Report 8432404-4 (Version None)
Quarter: 2012Q2

REPORT INFORMATION
  Report Type: 
  Country: None (occurrence: None)
  Receive Date: 20120606
  Receipt Date: 20120516
  Transmission Date: 20120825
  Serious: Yes (Hospitalization)
  Sender: FDA-Public Use
  Company Number: AG-2012-0292

PATIENT
  Age: 76 Year
  Sex: Male

DRUGS (11)
  1. BENDAMUSTINE (BENDAMUSTINE) [Concomitant]
  2. G-CSF (G-CSF) [Concomitant]
  3. PREDNISOLONE [Suspect]
     Indication: PRODUCT USED FOR UNKNOWN INDICATION
     Dosage: 20 MILLIGRAM (20 MILLIGRAM, 1 IN 1 DAYS), ORAL
     Route: 048
     Dates: start: 20120423, end: 20120425
  4. ACETAMINOPHEN [Concomitant]
  5. ALLOPURINOL [Concomitant]
  6. ACYCLOVIR [Concomitant]
  7. CHLORAMBUCIL (CHLORAMBUCIL) (TABLET) [Suspect]
     Indication: CHRONIC LYMPHOCYTIC LEUKAEMIA
     Dosage: 18 MILLIGRAM (1-2) (1000 MILLIGRAM (18 MILLIGRAM, 1 IN 1 DAYS), ORALQ
     Route: 048
     Dates: start: 20120323
  8. OFATUMUMAB (OFATUMUMAB) [Suspect]
     Indication: CHRONIC LYMPHOCYTIC LEUKAEMIA
     Dosage: 1000 MILLIGRAM), INTRAVENOUS
     Route: 042
     Dates: start: 20120321
  9. CHLORPHENIRAMINE MALEATE [Concomitant]
  10. RANITIDINE HYDROCHLORIDE [Concomitant]
  11. METOCLOPRAMIDE [Concomitant]

REACTIONS (3)
  - MALAISE [None]
  - PYREXIA [None]
  - INFECTION [None]
